FAERS Safety Report 12179981 (Version 1)
Quarter: 2016Q1

REPORT INFORMATION
  Report Type: Spontaneous
  Country: US (occurrence: None)
  Receive Date: 20160314
  Receipt Date: 20160314
  Transmission Date: 20160526
  Serious: No
  Sender: FDA-Public Use
  Company Number: None

PATIENT
  Sex: Female

DRUGS (1)
  1. CAPECITABINE 500MG TEVA [Suspect]
     Active Substance: CAPECITABINE
     Indication: BREAST CANCER
     Dosage: 2000MG BID X 14 DAYS THEN OFF 7 DAYS BY MOUTH
     Route: 048
     Dates: start: 20160225

REACTIONS (2)
  - Dyspnoea [None]
  - Palmar-plantar erythrodysaesthesia syndrome [None]
